FAERS Safety Report 9053736 (Version 2)
Quarter: 2013Q1

REPORT INFORMATION
  Report Type: Spontaneous
  Country: JP (occurrence: JP)
  Receive Date: 20130208
  Receipt Date: 20130326
  Transmission Date: 20140127
  Serious: Yes (Hospitalization)
  Sender: FDA-Public Use
  Company Number: JP-BAYER-2013-013067

PATIENT
  Age: 79 Year
  Sex: Male
  Weight: 59.86 kg

DRUGS (3)
  1. NEXAVAR [Suspect]
     Indication: HEPATOCELLULAR CARCINOMA
     Dosage: 400 MG, BID
     Route: 048
     Dates: start: 20130123, end: 20130126
  2. TRAMAL [Concomitant]
     Indication: CANCER PAIN
     Dosage: DAILY DOSE 50 MG
     Route: 048
     Dates: start: 20130123
  3. NOVAMIN [Concomitant]
     Indication: NAUSEA
     Dosage: DAILY DOSE 15 MG
     Route: 048
     Dates: start: 20130123, end: 20130126

REACTIONS (1)
  - Colitis ischaemic [Recovering/Resolving]
